FAERS Safety Report 5311804-5 (Version None)
Quarter: 2007Q2

REPORT INFORMATION
  Report Type: 
  Country: None (occurrence: None)
  Receive Date: 20070430
  Receipt Date: 20060309
  Transmission Date: 20071010
  Serious: No
  Sender: FDA-Public Use
  Company Number: 2006UW04065

PATIENT
  Age: 56 Year
  Sex: Female
  Weight: 127 kg

DRUGS (2)
  1. NEXIUM [Suspect]
     Indication: GASTROOESOPHAGEAL REFLUX DISEASE
     Route: 048
  2. ALLOPURINOL [Suspect]

REACTIONS (4)
  - ABDOMINAL PAIN [None]
  - FAECES PALE [None]
  - FLATULENCE [None]
  - HEPATIC ENZYME INCREASED [None]
